FAERS Safety Report 6521215-2 (Version None)
Quarter: 2009Q4

REPORT INFORMATION
  Report Type: 
  Country: None (occurrence: None)
  Receive Date: 20091230
  Receipt Date: 20091229
  Transmission Date: 20100525
  Serious: Yes (Hospitalization, Other)
  Sender: FDA-Public Use
  Company Number: US-BIOGENIDEC-2009BI010778

PATIENT
  Age: 49 Year
  Sex: Female

DRUGS (11)
  1. TYSABRI [Suspect]
     Indication: MULTIPLE SCLEROSIS
     Route: 042
     Dates: start: 20080812, end: 20081215
  2. BACLOFEN [Concomitant]
  3. XANAX [Concomitant]
  4. SOMA [Concomitant]
     Indication: MULTIPLE SCLEROSIS RELAPSE
  5. LEXAPRO [Concomitant]
  6. NOVOLOG [Concomitant]
  7. LANTUS [Concomitant]
  8. PROTONIX [Concomitant]
  9. ZANTAC [Concomitant]
  10. SEROQUEL [Concomitant]
  11. LOTENSIN [Concomitant]

REACTIONS (8)
  - CELLULITIS [None]
  - DEEP VEIN THROMBOSIS [None]
  - EMBOLIC PNEUMONIA [None]
  - MULTIPLE SCLEROSIS RELAPSE [None]
  - OPTIC NEURITIS [None]
  - PULMONARY EMBOLISM [None]
  - STAPHYLOCOCCAL BACTERAEMIA [None]
  - THROMBOPHLEBITIS SEPTIC [None]
